FAERS Safety Report 7672486-0 (Version None)
Quarter: 2011Q3

REPORT INFORMATION
  Report Type: 
  Country: None (occurrence: None)
  Receive Date: 20110803
  Receipt Date: 20110722
  Transmission Date: 20111222
  Serious: Yes (Hospitalization)
  Sender: FDA-Public Use
  Company Number: 2010SP014821

PATIENT
  Age: 18 Year
  Sex: Female
  Weight: 76.2043 kg

DRUGS (3)
  1. NUVARING [Suspect]
     Indication: DYSMENORRHOEA
     Dosage: ;QM; VAG
     Route: 067
     Dates: start: 20060831, end: 20070801
  2. INH [Concomitant]
  3. MULTI-VITAMINS [Concomitant]

REACTIONS (2)
  - DEEP VEIN THROMBOSIS [None]
  - APPENDICECTOMY [None]
